FAERS Safety Report 5489248-5 (Version None)
Quarter: 2007Q4

REPORT INFORMATION
  Report Type: 
  Country: None (occurrence: None)
  Receive Date: 20071018
  Receipt Date: 20071016
  Transmission Date: 20080405
  Serious: Yes (Hospitalization)
  Sender: FDA-Public Use
  Company Number: US-BAYER-200712222BCC

PATIENT
  Age: 5 Year
  Sex: Female
  Weight: 23 kg

DRUGS (2)
  1. RID PRODUCT [Suspect]
     Indication: LICE INFESTATION
     Route: 061
     Dates: start: 20070701
  2. RID PRODUCT [Suspect]
     Route: 061
     Dates: start: 20070711

REACTIONS (5)
  - DIARRHOEA [None]
  - PYREXIA [None]
  - URINARY TRACT INFECTION [None]
  - VOMITING [None]
  - WHITE BLOOD CELL COUNT INCREASED [None]
